FAERS Safety Report 5102540-9 (Version None)
Quarter: 2006Q3

REPORT INFORMATION
  Report Type: 
  Country: None (occurrence: None)
  Receive Date: 20060908
  Receipt Date: 20060821
  Transmission Date: 20061208
  Serious: Yes (Hospitalization)
  Sender: FDA-Public Use
  Company Number: CHNY2006GB02460

PATIENT
  Age: 7 Year
  Sex: Male

DRUGS (1)
  1. SCOPODERM TTS (NCH) (HYOSCINE HYDROBROMIDE)TANS-THERAPEUTIC SYSTEM [Suspect]
     Dosage: 1 MG TRANSDERMAL
     Route: 062

REACTIONS (4)
  - MYDRIASIS [None]
  - PHOTOPHOBIA [None]
  - PUPILLARY REFLEX IMPAIRED [None]
  - VISUAL ACUITY REDUCED [None]
